FAERS Safety Report 6278571-2 (Version None)
Quarter: 2009Q3

REPORT INFORMATION
  Report Type: 
  Country: None (occurrence: None)
  Receive Date: 20090722
  Receipt Date: 20081010
  Transmission Date: 20100115
  Serious: No
  Sender: FDA-Public Use
  Company Number: US-BAUSCH-2008BL004366

PATIENT
  Age: 37 Year
  Sex: Male

DRUGS (3)
  1. OPCON-A [Suspect]
     Indication: OCULAR HYPERAEMIA
     Route: 047
     Dates: start: 20081008, end: 20081008
  2. ASPIRIN [Concomitant]
  3. MAGNESIUM [Concomitant]

REACTIONS (5)
  - ABNORMAL SENSATION IN EYE [None]
  - BLEPHAROSPASM [None]
  - EYE IRRITATION [None]
  - EYE PAIN [None]
  - LID LAG [None]
